FAERS Safety Report 8785190 (Version 3)
Quarter: 2012Q4

REPORT INFORMATION
  Report Type: 
  Country: US (occurrence: US)
  Receive Date: 20120914
  Receipt Date: 20121206
  Transmission Date: 20130627
  Serious: No
  Sender: FDA-Public Use
  Company Number: US-009507513-1208USA011231

PATIENT
  Sex: Female

DRUGS (4)
  1. PEGINTRON [Suspect]
     Indication: HEPATITIS C
     Dosage: UNK
     Dates: start: 20120108
  2. RIBAVIRIN [Suspect]
     Indication: HEPATITIS C
     Dosage: 6 DF, qd
     Dates: start: 20120108, end: 201208
  3. RIBAVIRIN [Suspect]
     Dosage: 4 DF, qd
     Dates: start: 201208
  4. VICTRELIS [Suspect]
     Indication: HEPATITIS C
     Dosage: UNK
     Dates: start: 20120210

REACTIONS (17)
  - Scratch [Unknown]
  - Lung disorder [Unknown]
  - Sleep disorder [Unknown]
  - Blister [Unknown]
  - Weight decreased [Unknown]
  - Injection site pain [Unknown]
  - Vomiting [Unknown]
  - Pain in extremity [Unknown]
  - Alopecia [Unknown]
  - Anaemia [Unknown]
  - Blister [Unknown]
  - Irritability [Unknown]
  - Decreased appetite [Unknown]
  - Fatigue [Unknown]
  - Fatigue [Unknown]
  - Asthenia [Unknown]
  - Nausea [Unknown]
